FAERS Safety Report 12654416 (Version 1)
Quarter: 2016Q3

REPORT INFORMATION
  Report Type: Spontaneous
  Country: US (occurrence: None)
  Receive Date: 20160815
  Receipt Date: 20160815
  Transmission Date: 20161109
  Serious: Yes (Disabling)
  Sender: FDA-Public Use
  Company Number: None

PATIENT
  Age: 43 Year
  Sex: Male
  Weight: 113.4 kg

DRUGS (6)
  1. VITAMINS [Concomitant]
     Active Substance: VITAMINS
  2. CHANTIX [Suspect]
     Active Substance: VARENICLINE TARTRATE
     Indication: SMOKING CESSATION THERAPY
     Dosage: 1 TABLET(S) TWIICE A DAY TAKEN BY MOUTH
     Route: 048
     Dates: start: 20160610, end: 20160629
  3. MAGNESIUM [Concomitant]
     Active Substance: MAGNESIUM
  4. VITAMIN B12 [Concomitant]
     Active Substance: CYANOCOBALAMIN
  5. LAMISIL [Concomitant]
     Active Substance: TERBINAFINE HYDROCHLORIDE
  6. B6 [Concomitant]
     Active Substance: PYRIDOXINE HYDROCHLORIDE

REACTIONS (11)
  - Dyspnoea [None]
  - Muscle tightness [None]
  - Hyperaesthesia [None]
  - Gait disturbance [None]
  - Sleep disorder [None]
  - Irritability [None]
  - Pain in extremity [None]
  - Visual impairment [None]
  - Night blindness [None]
  - Arrhythmia [None]
  - Arthralgia [None]

NARRATIVE: CASE EVENT DATE: 20160727
